FAERS Safety Report 9015015 (Version 1)
Quarter: 2013Q1

REPORT INFORMATION
  Report Type: Spontaneous
  Country: FR (occurrence: FR)
  Receive Date: 20130116
  Receipt Date: 20130116
  Transmission Date: 20140127
  Serious: Yes (Hospitalization)
  Sender: FDA-Public Use
  Company Number: FR-BRISTOL-MYERS SQUIBB COMPANY-17280520

PATIENT
  Age: 89 Year
  Sex: Male

DRUGS (5)
  1. COUMADIN [Suspect]
     Indication: ATRIAL FIBRILLATION
     Dosage: 4MG/D:22NOV12-05DEC12?2MG/D:07DEC12-09DEC12?1MG/D:09DEC12-ONG
     Route: 048
     Dates: start: 20121122
  2. CORTANCYL [Concomitant]
  3. AVODART [Concomitant]
  4. KARDEGIC [Concomitant]
  5. CORDARONE [Concomitant]

REACTIONS (2)
  - International normalised ratio increased [Recovered/Resolved]
  - Renal failure [Recovered/Resolved]
